FAERS Safety Report 5781969-X (Version None)
Quarter: 2008Q2

REPORT INFORMATION
  Report Type: 
  Country: None (occurrence: None)
  Receive Date: 20080623
  Receipt Date: 20080221
  Transmission Date: 20081010
  Serious: No
  Sender: FDA-Public Use
  Company Number: US-ASTRAZENECA-2008UW03685

PATIENT
  Age: 79 Year
  Sex: Male
  Weight: 97.5 kg

DRUGS (5)
  1. RHINOCORT [Suspect]
     Indication: RHINORRHOEA
     Route: 045
     Dates: start: 20080204
  2. LEVOXYL [Concomitant]
  3. COZAAR [Concomitant]
  4. CLORAZEPATE DIPOTASSIUM [Concomitant]
  5. COD LIVER OIL [Concomitant]

REACTIONS (1)
  - RHINORRHOEA [None]
